FAERS Safety Report 23103887 (Version 1)
Quarter: 2023Q4

REPORT INFORMATION
  Report Type: Spontaneous
  Country: US (occurrence: None)
  Receive Date: 20231022
  Receipt Date: 20231022
  Transmission Date: 20240110
  Serious: Yes (Hospitalization)
  Sender: FDA-Public Use
  Company Number: None

PATIENT
  Age: 69 Year
  Sex: Male
  Weight: 78 kg

DRUGS (1)
  1. PIPERACILLIN AND TAZOBACTAM [Suspect]
     Active Substance: PIPERACILLIN SODIUM\TAZOBACTAM SODIUM
     Dosage: OTHER QUANTITY : 3.375 GM;?FREQUENCY : TWICE A DAY;?
     Route: 042
     Dates: start: 20221011, end: 20221011

REACTIONS (3)
  - Hypotension [None]
  - Tachycardia [None]
  - Respiratory failure [None]

NARRATIVE: CASE EVENT DATE: 20221011
